FAERS Safety Report 6190194-2 (Version None)
Quarter: 2009Q2

REPORT INFORMATION
  Report Type: 
  Country: None (occurrence: None)
  Receive Date: 20090514
  Receipt Date: 20090512
  Transmission Date: 20091009
  Serious: Yes (Death, Hospitalization)
  Sender: FDA-Public Use
  Company Number: JP-B.I. PHARMACEUTICALS,INC./RIDGEFIELD-2009-BP-05858NB

PATIENT
  Sex: Male
  Weight: 60 kg

DRUGS (11)
  1. BI-SIFROL TABLETS [Suspect]
     Indication: PARKINSON'S DISEASE
     Dosage: .5MG
     Route: 048
     Dates: start: 20040922, end: 20050305
  2. PENFILL 30R [Concomitant]
     Indication: DIABETES MELLITUS
     Dosage: 40 U
     Route: 058
     Dates: start: 20030310, end: 20050305
  3. HARNAL [Concomitant]
     Dosage: 1ANZ
     Route: 048
     Dates: start: 20010410, end: 20050305
  4. MADOPAR [Concomitant]
     Dosage: 1ANZ
     Route: 048
     Dates: start: 20010410, end: 20050305
  5. DOPS [Concomitant]
     Route: 048
     Dates: start: 20011031, end: 20050305
  6. PARLODEL [Concomitant]
     Dosage: 1ANZ
     Route: 048
     Dates: start: 20030310, end: 20050305
  7. LENDORMIN [Concomitant]
     Dosage: 1ANZ
     Route: 048
     Dates: start: 20010410, end: 20050305
  8. GANATON [Concomitant]
     Dosage: 3ANZ
     Route: 048
     Dates: start: 20010409, end: 20050305
  9. MAGNESIUM OXIDE [Concomitant]
     Dosage: 3G
     Route: 048
     Dates: start: 20010409, end: 20050305
  10. GASMOTIN [Concomitant]
     Route: 048
     Dates: start: 20010409, end: 20050305
  11. MEXITIL [Concomitant]
     Dosage: 100MG
     Route: 048
     Dates: start: 20010717, end: 20050305

REACTIONS (1)
  - PNEUMONIA [None]
